FAERS Safety Report 5520148-8 (Version None)
Quarter: 2007Q4

REPORT INFORMATION
  Report Type: 
  Country: None (occurrence: None)
  Receive Date: 20071116
  Receipt Date: 20071113
  Transmission Date: 20080405
  Serious: Yes (Hospitalization)
  Sender: FDA-Public Use
  Company Number: US-BOEHRINGER INGELHEIM PHARMACEUTICALS, INC.-2007-BP-24443BP

PATIENT
  Sex: Male

DRUGS (8)
  1. FLOMAX [Suspect]
     Indication: BENIGN PROSTATIC HYPERPLASIA
     Route: 048
     Dates: start: 19960101, end: 20071028
  2. AVONEX [Concomitant]
     Indication: MULTIPLE SCLEROSIS
  3. COUMADIN [Concomitant]
     Indication: ATRIAL FIBRILLATION
  4. DIGOXIN [Concomitant]
     Indication: ATRIAL FIBRILLATION
  5. TOPROL-XL [Concomitant]
     Indication: ATRIAL FIBRILLATION
  6. UROCIT-K [Concomitant]
     Indication: NEPHROLITHIASIS
  7. ZOCOR [Concomitant]
     Indication: BLOOD CHOLESTEROL
  8. ARICEPT [Concomitant]
     Indication: MULTIPLE SCLEROSIS

REACTIONS (4)
  - HEAD INJURY [None]
  - LOSS OF CONSCIOUSNESS [None]
  - ORTHOSTATIC HYPOTENSION [None]
  - SKIN LACERATION [None]
